FAERS Safety Report 5028103-1 (Version None)
Quarter: 2006Q2

REPORT INFORMATION
  Report Type: 
  Country: None (occurrence: None)
  Receive Date: 20060613
  Receipt Date: 20060530
  Transmission Date: 20061013
  Serious: Yes (Other)
  Sender: FDA-Public Use
  Company Number: EM2006-0306

PATIENT
  Age: 65 Year
  Sex: Male

DRUGS (6)
  1. PROLEUKIN [Suspect]
     Indication: HIV INFECTION
     Dosage: 4.5 MIU BID SUBCUTAN.
     Route: 058
     Dates: end: 20010901
  2. LAMIVUDINE [Concomitant]
  3. DIDANOSINE [Concomitant]
  4. SAQUINAVIR [Concomitant]
  5. RITONAVIR (RITONAVIR) [Concomitant]
  6. ABACAVIR [Concomitant]

REACTIONS (10)
  - ASCITES [None]
  - ASTHENIA [None]
  - CHOLESTASIS [None]
  - HEPATIC FIBROSIS [None]
  - INFLUENZA [None]
  - NODULAR REGENERATIVE HYPERPLASIA [None]
  - PORTAL HYPERTENSION [None]
  - RASH [None]
  - SPLENOMEGALY [None]
  - VARICES OESOPHAGEAL [None]
